FAERS Safety Report 22853958 (Version 3)
Quarter: 2024Q1

REPORT INFORMATION
  Report Type: Report from Study
  Country: US (occurrence: US)
  Receive Date: 20230823
  Receipt Date: 20240202
  Transmission Date: 20240409
  Serious: Yes (Death, Other)
  Sender: FDA-Public Use
  Company Number: US-JNJFOC-20230839784

PATIENT
  Age: 70 Year
  Sex: Male
  Weight: 64.014 kg

DRUGS (32)
  1. DARATUMUMAB [Suspect]
     Active Substance: DARATUMUMAB
     Indication: Plasma cell myeloma
     Route: 058
     Dates: start: 20230330, end: 20230518
  2. ELRANATAMAB [Suspect]
     Active Substance: ELRANATAMAB
     Indication: Plasma cell myeloma
     Route: 058
     Dates: start: 20230313, end: 20230518
  3. AMOXICILLIN [Concomitant]
     Active Substance: AMOXICILLIN
     Indication: Pneumonia aspiration
     Route: 065
     Dates: start: 20230625, end: 20230628
  4. ELECTROLYTES NOS [Concomitant]
     Active Substance: ELECTROLYTES NOS
     Indication: Hypotension
     Route: 042
     Dates: start: 20230620, end: 20230626
  5. VITAMIN B COMPLEX [Concomitant]
     Active Substance: CYANOCOBALAMIN\DEXPANTHENOL\NIACINAMIDE\PYRIDOXINE HYDROCHLORIDE\RIBOFLAVIN 5^-PHOSPHATE SODIUM\THIA
     Indication: Refeeding syndrome
     Route: 065
     Dates: start: 20230621, end: 20230801
  6. CHLORVESCENT [POTASSIUM CHLORIDE] [Concomitant]
     Indication: Hypokalaemia
     Route: 048
     Dates: start: 20230621, end: 20230624
  7. CHLORVESCENT [POTASSIUM CHLORIDE] [Concomitant]
     Indication: Prophylaxis
     Route: 048
     Dates: start: 20230620, end: 20230620
  8. CHLORVESCENT [POTASSIUM CHLORIDE] [Concomitant]
     Route: 048
     Dates: start: 20230626, end: 20230629
  9. OMEPRAZOLE [Concomitant]
     Active Substance: OMEPRAZOLE
     Indication: Pain prophylaxis
     Route: 065
     Dates: start: 20230314, end: 20230801
  10. OMEPRAZOLE [Concomitant]
     Active Substance: OMEPRAZOLE
     Indication: Gastrooesophageal reflux prophylaxis
  11. THIAMINE [Concomitant]
     Active Substance: THIAMINE
     Indication: Prophylaxis
     Route: 065
     Dates: start: 20230621, end: 20230801
  12. ACETAMINOPHEN [Concomitant]
     Active Substance: ACETAMINOPHEN
     Indication: Pain in extremity
     Route: 048
     Dates: start: 20230314, end: 20230801
  13. ACETAMINOPHEN [Concomitant]
     Active Substance: ACETAMINOPHEN
     Indication: Cytokine release syndrome
  14. TAMSULOSIN [Concomitant]
     Active Substance: TAMSULOSIN
     Indication: Urine output decreased
     Route: 048
     Dates: start: 20230623, end: 20230801
  15. AMOXICILLIN;CLAVULANIC ACID;SODIUM [Concomitant]
     Indication: Pneumonia aspiration
     Route: 042
     Dates: start: 20230623, end: 20230625
  16. REMDESIVIR [Concomitant]
     Active Substance: REMDESIVIR
     Indication: COVID-19
     Route: 042
     Dates: start: 20230621, end: 20230624
  17. REMDESIVIR [Concomitant]
     Active Substance: REMDESIVIR
     Route: 042
     Dates: start: 20230630
  18. REMDESIVIR [Concomitant]
     Active Substance: REMDESIVIR
     Route: 042
     Dates: start: 20230701, end: 20230709
  19. COTRIMOXAZOLE [Concomitant]
     Active Substance: SULFAMETHOXAZOLE\TRIMETHOPRIM
     Indication: Prophylaxis
     Route: 048
     Dates: start: 20230313, end: 20230630
  20. ENSURE [Concomitant]
     Active Substance: AMINO ACIDS\DEXTROSE\ELECTROLYTES NOS\SOYBEAN OIL\VITAMINS
     Indication: Weight decreased
     Route: 048
     Dates: start: 20230526, end: 20230801
  21. ENSURE [Concomitant]
     Active Substance: AMINO ACIDS\DEXTROSE\ELECTROLYTES NOS\SOYBEAN OIL\VITAMINS
     Indication: Decreased appetite
  22. VALACYCLOVIR HYDROCHLORIDE [Concomitant]
     Active Substance: VALACYCLOVIR HYDROCHLORIDE
     Indication: Prophylaxis
     Route: 048
     Dates: start: 20230313, end: 20230801
  23. TEMAZEPAM [Concomitant]
     Active Substance: TEMAZEPAM
     Indication: Insomnia
     Route: 048
     Dates: start: 20230315, end: 20230801
  24. VITAMINS NOS [Concomitant]
     Active Substance: VITAMINS
     Indication: Refeeding syndrome
     Route: 048
     Dates: start: 20230621, end: 20230801
  25. SODIUM CHLORIDE [Concomitant]
     Active Substance: SODIUM CHLORIDE
     Indication: Hypotension
     Route: 042
     Dates: start: 20230624, end: 20230630
  26. METOCLOPRAMIDE [Concomitant]
     Active Substance: METOCLOPRAMIDE
     Indication: Prophylaxis
     Route: 048
     Dates: start: 20230216, end: 20230801
  27. ONDANSETRON [Concomitant]
     Active Substance: ONDANSETRON
     Indication: Prophylaxis of nausea and vomiting
     Route: 048
     Dates: start: 20230216, end: 20230801
  28. PROCTOSEDYL [CINCHOCAINE HYDROCHLORIDE;ESCULOSIDE;FRAMYCETIN SULFATE;H [Concomitant]
     Indication: Haemorrhoidal haemorrhage
     Dates: start: 20230620, end: 20230801
  29. DEXAMETHASONE [Concomitant]
     Active Substance: DEXAMETHASONE
     Route: 048
     Dates: start: 20230630, end: 20230703
  30. DEXAMETHASONE [Concomitant]
     Active Substance: DEXAMETHASONE
     Route: 048
     Dates: start: 20230704, end: 20230721
  31. DEXAMETHASONE [Concomitant]
     Active Substance: DEXAMETHASONE
     Route: 048
     Dates: start: 20230722, end: 20230728
  32. DEXAMETHASONE [Concomitant]
     Active Substance: DEXAMETHASONE
     Route: 048
     Dates: start: 20230729, end: 20230801

REACTIONS (2)
  - Cytomegalovirus infection [Fatal]
  - COVID-19 pneumonia [Recovered/Resolved with Sequelae]

NARRATIVE: CASE EVENT DATE: 20230629
